FAERS Safety Report 6577307-5 (Version None)
Quarter: 2010Q1

REPORT INFORMATION
  Report Type: 
  Country: None (occurrence: None)
  Receive Date: 20100210
  Receipt Date: 20100202
  Transmission Date: 20100710
  Serious: Yes (Hospitalization)
  Sender: FDA-Public Use
  Company Number: AT-ABBOTT-10P-009-0623698-00

PATIENT
  Age: 38 Year
  Sex: Female

DRUGS (7)
  1. DEPAKENE [Suspect]
     Indication: SCHIZOAFFECTIVE DISORDER
     Route: 048
     Dates: start: 20080101
  2. DEPAKENE [Suspect]
     Indication: PSYCHOTIC DISORDER
  3. CLOZAPINE [Suspect]
     Indication: DRUG USE FOR UNKNOWN INDICATION
     Dates: start: 20090501
  4. SEROQUEL [Suspect]
     Indication: DRUG USE FOR UNKNOWN INDICATION
     Dates: start: 20090501, end: 20090606
  5. SEROQUEL [Suspect]
     Dates: start: 20090607, end: 20090611
  6. SEROQUEL [Suspect]
     Dates: start: 20090612
  7. LEVOTHYROXINE SODIUM [Suspect]
     Indication: DRUG USE FOR UNKNOWN INDICATION
     Dates: start: 20080101

REACTIONS (2)
  - HAEMATOMA [None]
  - SUBDURAL HAEMATOMA [None]
